FAERS Safety Report 18090801 (Version 18)
Quarter: 2022Q3

REPORT INFORMATION
  Report Type: Report from Study
  Country: GB (occurrence: None)
  Receive Date: 20200730
  Receipt Date: 20220704
  Transmission Date: 20221027
  Serious: Yes (Hospitalization, Other)
  Sender: FDA-Public Use
  Company Number: GB-EMA-DD-20200720-GANGAL_S-104324

PATIENT
  Age: 81 Year
  Sex: Female

DRUGS (6)
  1. METHOTREXATE [Suspect]
     Active Substance: METHOTREXATE
     Indication: Product used for unknown indication
     Route: 065
  2. LEFLUNOMIDE [Suspect]
     Active Substance: LEFLUNOMIDE
     Indication: Product used for unknown indication
     Route: 065
  3. ETANERCEPT [Suspect]
     Active Substance: ETANERCEPT
     Indication: Rheumatoid arthritis
     Route: 058
     Dates: start: 20190925
  4. FOLIC ACID [Concomitant]
     Active Substance: FOLIC ACID
     Route: 065
  5. ACETAMINOPHEN [Concomitant]
     Active Substance: ACETAMINOPHEN
     Dosage: AS NECESSARY
     Route: 065
  6. ACETAMINOPHEN [Concomitant]
     Active Substance: ACETAMINOPHEN
     Dosage: 1 DF AS NEEDED
     Route: 065

REACTIONS (37)
  - Drug ineffective [Unknown]
  - Mental disorder [Unknown]
  - Somnolence [Unknown]
  - Bedridden [Not Recovered/Not Resolved]
  - Malaise [Not Recovered/Not Resolved]
  - Arthralgia [Not Recovered/Not Resolved]
  - Cellulitis [Not Recovered/Not Resolved]
  - Back pain [Not Recovered/Not Resolved]
  - Weight decreased [Unknown]
  - Balance disorder [Not Recovered/Not Resolved]
  - Fatigue [Not Recovered/Not Resolved]
  - Skin ulcer [Not Recovered/Not Resolved]
  - Eczema [Unknown]
  - Sleep disorder [Unknown]
  - Peripheral swelling [Unknown]
  - Mobility decreased [Recovering/Resolving]
  - Pain [Unknown]
  - Rheumatoid arthritis [Unknown]
  - Hypersomnia [Unknown]
  - Anaemia [Unknown]
  - Frustration tolerance decreased [Unknown]
  - Coma [Unknown]
  - Localised infection [Unknown]
  - Stress [Unknown]
  - Abdominal distension [Recovering/Resolving]
  - Knee arthroplasty [Unknown]
  - General physical health deterioration [Unknown]
  - Weight increased [Unknown]
  - Bursitis [Not Recovered/Not Resolved]
  - Cataract [Unknown]
  - Urinary tract infection [Not Recovered/Not Resolved]
  - Renal cyst [Not Recovered/Not Resolved]
  - Alopecia [Unknown]
  - Hip arthroplasty [Unknown]
  - Psychiatric symptom [Unknown]
  - Fall [Unknown]
  - Decreased appetite [Unknown]
